FAERS Safety Report 5141849-X (Version None)
Quarter: 2006Q4

REPORT INFORMATION
  Report Type: 
  Country: None (occurrence: None)
  Receive Date: 20061027
  Receipt Date: 20061013
  Transmission Date: 20070319
  Serious: Yes (Life-Threatening)
  Sender: FDA-Public Use
  Company Number: FR200610002435

PATIENT
  Age: 1 Day
  Weight: 3.2 kg

DRUGS (2)
  1. ZYPREXA [Suspect]
     Dosage: TRANSPLACENTAL
     Route: 064
  2. TERCIAN (CYAMEMAZINE) [Concomitant]

REACTIONS (4)
  - DRUG EXPOSURE DURING PREGNANCY [None]
  - HYPOTONIA NEONATAL [None]
  - MATERNAL CONDITION AFFECTING FOETUS [None]
  - NEONATAL RESPIRATORY DISTRESS SYNDROME [None]
